FAERS Safety Report 8721151 (Version 2)
Quarter: 2013Q1

REPORT INFORMATION
  Report Type: Spontaneous
  Country: BR (occurrence: BR)
  Receive Date: 20120813
  Receipt Date: 20130128
  Transmission Date: 20140127
  Serious: No
  Sender: FDA-Public Use
  Company Number: PHHY2012BR069639

PATIENT
  Sex: Male

DRUGS (1)
  1. DIOVAN HCT [Suspect]
     Dosage: 0.5 DF (320/12.5MG) ONCE A DAY
     Dates: start: 2012

REACTIONS (1)
  - Wrong technique in drug usage process [Not Recovered/Not Resolved]
